FAERS Safety Report 9145908 (Version 1)
Quarter: 2013Q1

REPORT INFORMATION
  Report Type: Spontaneous
  Country: US (occurrence: US)
  Receive Date: 20130307
  Receipt Date: 20130307
  Transmission Date: 20140127
  Serious: No
  Sender: FDA-Public Use
  Company Number: US-MYLANLABS-2013S1001943

PATIENT
  Sex: Male

DRUGS (1)
  1. DOXYCYCLINE HYCLATE DELAYED-RELEASE TABLETS USP [Suspect]
     Route: 048
     Dates: start: 201211

REACTIONS (1)
  - Foreign body [Not Recovered/Not Resolved]
